FAERS Safety Report 7329172 (Version 2)
Quarter: 2014Q3

REPORT INFORMATION
  Report Type: Spontaneous
  Country: US (occurrence: None)
  Receive Date: 20100305
  Receipt Date: 20140723
  Transmission Date: 20150326
  Serious: Yes (Hospitalization, Other)
  Sender: FDA-Public Use
  Company Number: 2010S1000768

PATIENT
  Age: 68 Year
  Sex: Female
  Weight: 113 kg

DRUGS (6)
  1. DELESTROGEN (ESTRADIOL VALERATE) [Concomitant]
  2. PHOSPHO-SODA [Suspect]
     Active Substance: SODIUM PHOSPHATE, DIBASIC\SODIUM PHOSPHATE, MONOBASIC
     Indication: OVARIAN OPERATION
     Dosage: PO
     Route: 048
     Dates: start: 20060901, end: 20060901
  3. FLEET [Suspect]
     Active Substance: BISACODYL\GLYCERIN\MINERAL OIL\SODIUM PHOSPHATE, DIBASIC\SODIUM PHOSPHATE, MONOBASIC
     Indication: OVARIAN OPERATION
     Route: 054
     Dates: start: 200609, end: 200609
  4. DIOVAN /01319601/ (VALSARTAN) [Concomitant]
  5. ZOCOR [Concomitant]
     Active Substance: SIMVASTATIN
  6. INDAPAMIDE. [Concomitant]
     Active Substance: INDAPAMIDE

REACTIONS (27)
  - Nephrocalcinosis [None]
  - Acute phosphate nephropathy [None]
  - Renal disorder [None]
  - Pleural effusion [None]
  - Nausea [None]
  - Poor venous access [None]
  - Blood creatinine increased [None]
  - Nephrogenic anaemia [None]
  - Stress [None]
  - Dizziness [None]
  - Renal tubular necrosis [None]
  - Renal failure acute [None]
  - Syncope [None]
  - Renal tubular atrophy [None]
  - Vomiting [None]
  - Asthenia [None]
  - Atelectasis [None]
  - Postoperative renal failure [None]
  - Cardiac stress test abnormal [None]
  - Orthostatic intolerance [None]
  - Glomerular filtration rate decreased [None]
  - Tubulointerstitial nephritis [None]
  - Kidney fibrosis [None]
  - Dehydration [None]
  - Fatigue [None]
  - Hypertension [None]
  - Pancreatitis acute [None]

NARRATIVE: CASE EVENT DATE: 20060917
